FAERS Safety Report 4779860-0 (Version None)
Quarter: 2005Q3

REPORT INFORMATION
  Report Type: 
  Country: None (occurrence: None)
  Receive Date: 20050914
  Receipt Date: 20050706
  Transmission Date: 20060218
  Serious: Yes (Death, Hospitalization)
  Sender: FDA-Public Use
  Company Number: 163-20785-04060505

PATIENT
  Age: 71 Year
  Sex: Male

DRUGS (17)
  1. THALOMID [Suspect]
     Indication: MULTIPLE MYELOMA
     Dosage: 200 MG, QD, ORAL
     Route: 048
     Dates: start: 20040601, end: 20040604
  2. THALOMID [Suspect]
     Indication: MULTIPLE MYELOMA
     Dosage: 200 MG, QD, ORAL
     Route: 048
     Dates: start: 20040706
  3. BORTEZOMIB (BORTEZOMIB) [Suspect]
     Indication: MULTIPLE MYELOMA
     Dosage: 2 MG, EVERY FIFTH DAY, INTRAVENOUS
     Route: 042
     Dates: start: 20040528, end: 20040608
  4. BORTEZOMIB (BORTEZOMIB) [Suspect]
     Indication: MULTIPLE MYELOMA
     Dosage: 2 MG, EVERY FIFTH DAY, INTRAVENOUS
     Route: 042
     Dates: start: 20040601
  5. BORTEZOMIB (BORTEZOMIB) [Suspect]
     Indication: MULTIPLE MYELOMA
     Dosage: 2 MG, EVERY FIFTH DAY, INTRAVENOUS
     Route: 042
     Dates: start: 20040605
  6. BORTEZOMIB (BORTEZOMIB) [Suspect]
     Indication: MULTIPLE MYELOMA
     Dosage: 2 MG, EVERY FIFTH DAY, INTRAVENOUS
     Route: 042
     Dates: start: 20040608
  7. BORTEZOMIB (BORTEZOMIB) [Suspect]
     Indication: MULTIPLE MYELOMA
     Dosage: 2 MG, EVERY FIFTH DAY, INTRAVENOUS
     Route: 042
     Dates: start: 20040706
  8. DEXAMETHASONE [Suspect]
     Indication: MULTIPLE MYELOMA
     Dosage: 40 MG, QD, ORAL
     Route: 048
     Dates: start: 20040601, end: 20040604
  9. DEXAMETHASONE [Suspect]
     Indication: MULTIPLE MYELOMA
     Dosage: 40 MG, QD, ORAL
     Route: 048
     Dates: start: 20040706
  10. CISPLATIN [Suspect]
     Indication: MULTIPLE MYELOMA
     Dosage: 20 MG, QD, INTRAVENOUS
     Route: 042
     Dates: start: 20040601, end: 20040604
  11. CISPLATIN [Suspect]
     Indication: MULTIPLE MYELOMA
     Dosage: 20 MG, QD, INTRAVENOUS
     Route: 042
     Dates: start: 20040706
  12. ADRIAMYCIN PFS [Suspect]
     Indication: MULTIPLE MYELOMA
     Dosage: 20 MG, QD, INTRAVENOUS
     Route: 042
     Dates: start: 20040601, end: 20040604
  13. ADRIAMYCIN PFS [Suspect]
     Indication: MULTIPLE MYELOMA
     Dosage: 20 MG, QD, INTRAVENOUS
     Route: 042
     Dates: start: 20040706
  14. CYCLOPHOSPHAMIDE [Suspect]
     Indication: MULTIPLE MYELOMA
     Dosage: 800 MG, QD, INTRAVENOUS
     Route: 042
     Dates: start: 20040601, end: 20040604
  15. CYCLOPHOSPHAMIDE [Suspect]
     Indication: MULTIPLE MYELOMA
     Dosage: 800 MG, QD, INTRAVENOUS
     Route: 042
     Dates: start: 20040706
  16. ETOPOSIDE [Suspect]
     Indication: MULTIPLE MYELOMA
     Dosage: 80 MG, QD, INTRAVENOUS
     Route: 042
     Dates: start: 20040601, end: 20040604
  17. ETOPOSIDE [Suspect]
     Indication: MULTIPLE MYELOMA
     Dosage: 80 MG, QD, INTRAVENOUS
     Route: 042
     Dates: start: 20040706

REACTIONS (3)
  - HEAD INJURY [None]
  - SEPTIC SHOCK [None]
  - TRAUMATIC HAEMATOMA [None]
